FAERS Safety Report 4812876-4 (Version None)
Quarter: 2005Q4

REPORT INFORMATION
  Report Type: 
  Country: None (occurrence: None)
  Receive Date: 20051028
  Receipt Date: 20041201
  Transmission Date: 20060501
  Serious: No
  Sender: FDA-Public Use
  Company Number: US-GLAXOSMITHKLINE-A0535716A

PATIENT
  Age: 49 Year
  Sex: Female

DRUGS (10)
  1. ADVAIR DISKUS 100/50 [Suspect]
     Indication: ASTHMA
     Dosage: 1PUFF TWICE PER DAY
     Route: 055
  2. SINGULAIR [Concomitant]
  3. LORATADINE [Concomitant]
  4. LISINOPRIL [Concomitant]
  5. MULTI-VITAMIN [Concomitant]
  6. CALCIUM GLUCONATE [Concomitant]
  7. ACIPHEX [Concomitant]
  8. ALBUTEROL [Concomitant]
  9. NASACORT [Concomitant]
  10. IBUPROFEN [Concomitant]

REACTIONS (1)
  - PARAESTHESIA [None]
